FAERS Safety Report 8575388-0 (Version None)
Quarter: 2012Q3

REPORT INFORMATION
  Report Type: 
  Country: None (occurrence: None)
  Receive Date: 20120807
  Receipt Date: 20120801
  Transmission Date: 20120928
  Serious: Yes (Other)
  Sender: FDA-Public Use
  Company Number: US-PFIZER INC-2012187621

PATIENT
  Age: 71 Year
  Sex: Female
  Weight: 50.34 kg

DRUGS (3)
  1. VFEND [Suspect]
     Indication: ASPERGILLOSIS
     Dosage: 200 MG, 2X/DAY
     Route: 048
     Dates: start: 20120625, end: 20120717
  2. POTASSIUM [Concomitant]
     Dosage: UNK
  3. LASIX [Concomitant]
     Dosage: UNK

REACTIONS (6)
  - BLOOD ALKALINE PHOSPHATASE ABNORMAL [None]
  - WEIGHT INCREASED [None]
  - OEDEMA PERIPHERAL [None]
  - ALANINE AMINOTRANSFERASE ABNORMAL [None]
  - ASPARTATE AMINOTRANSFERASE ABNORMAL [None]
  - ABDOMINAL PAIN UPPER [None]
